FAERS Safety Report 12180100 (Version 2)
Quarter: 2016Q2

REPORT INFORMATION
  Report Type: Spontaneous
  Country: US (occurrence: US)
  Receive Date: 20160315
  Receipt Date: 20160420
  Transmission Date: 20160815
  Serious: No
  Sender: FDA-Public Use
  Company Number: US-PFIZER INC-2016134055

PATIENT
  Age: 58 Year
  Sex: Female

DRUGS (2)
  1. ANASTROZOLE. [Concomitant]
     Active Substance: ANASTROZOLE
     Indication: BREAST CANCER
     Dosage: UNK
  2. IBRANCE [Suspect]
     Active Substance: PALBOCICLIB
     Indication: BREAST CANCER
     Dosage: 125 MG, CYCLIC (1 CAPSULE DAILY FOR 21 DAYS ON 7 OFF)
     Dates: start: 20160210

REACTIONS (1)
  - White blood cell count decreased [Unknown]
